FAERS Safety Report 20319993 (Version 1)
Quarter: 2022Q1

REPORT INFORMATION
  Report Type: Spontaneous
  Country: FR (occurrence: FR)
  Receive Date: 20220111
  Receipt Date: 20220111
  Transmission Date: 20220423
  Serious: Yes (Hospitalization, Other)
  Sender: FDA-Public Use
  Company Number: FR-AFSSAPS-AN20214870

PATIENT
  Age: 36 Year
  Sex: Female

DRUGS (2)
  1. CEFPODOXIME [Suspect]
     Active Substance: CEFPODOXIME
     Indication: Tonsillitis
     Dosage: UNK
     Route: 048
     Dates: start: 20211213, end: 20211213
  2. IBUPROFEN [Suspect]
     Active Substance: IBUPROFEN
     Indication: Tonsillitis
     Dosage: 1 DOSAGE FORM, 1 TOTAL
     Route: 048
     Dates: start: 20211213, end: 20211213

REACTIONS (1)
  - Encephalitis [Recovered/Resolved]

NARRATIVE: CASE EVENT DATE: 20211213
